FAERS Safety Report 13721057 (Version 1)
Quarter: 2017Q3

REPORT INFORMATION
  Report Type: Spontaneous
  Country: US (occurrence: US)
  Receive Date: 20170705
  Receipt Date: 20170705
  Transmission Date: 20171127
  Serious: Yes (Hospitalization)
  Sender: FDA-Public Use
  Company Number: None

PATIENT
  Age: 83 Year
  Sex: Male

DRUGS (7)
  1. OMERPRAZOLE [Concomitant]
     Active Substance: OMEPRAZOLE
  2. MILK OF MAGNESIA [Concomitant]
     Active Substance: MAGNESIUM HYDROXIDE
  3. NEULASTA [Suspect]
     Active Substance: PEGFILGRASTIM
     Indication: MALIGNANT ANORECTAL NEOPLASM
     Dosage: OTHER DOSE:MG;OTHER FREQUENCY:INJECT;?
     Route: 058
  4. BITARTRATE [Concomitant]
  5. LASIX [Concomitant]
     Active Substance: FUROSEMIDE
  6. HYDROCODONE [Concomitant]
     Active Substance: HYDROCODONE
  7. DIFLUCAN [Concomitant]
     Active Substance: FLUCONAZOLE

REACTIONS (1)
  - Hospitalisation [None]
